FAERS Safety Report 21032252 (Version 2)
Quarter: 2022Q3

REPORT INFORMATION
  Report Type: Spontaneous
  Country: ES (occurrence: ES)
  Receive Date: 20220701
  Receipt Date: 20220706
  Transmission Date: 20221026
  Serious: No
  Sender: FDA-Public Use
  Company Number: ES-UCBSA-2022035470

PATIENT
  Age: 74 Year
  Sex: Male
  Weight: 82 kg

DRUGS (2)
  1. NEUPRO [Suspect]
     Active Substance: ROTIGOTINE
     Indication: Restless legs syndrome
     Dosage: 3MG UNK
     Route: 062
  2. NEUPRO [Suspect]
     Active Substance: ROTIGOTINE
     Dosage: 6 MILLIGRAM, UNK
     Route: 062
     Dates: start: 20120614

REACTIONS (4)
  - Restless legs syndrome [Unknown]
  - Product adhesion issue [Unknown]
  - Incorrect dose administered [Unknown]
  - Overdose [Unknown]
